FAERS Safety Report 9289345 (Version 1)
Quarter: 2013Q2

REPORT INFORMATION
  Report Type: Spontaneous
  Country: IT (occurrence: IT)
  Receive Date: 20130514
  Receipt Date: 20130514
  Transmission Date: 20140414
  Serious: Yes (Death, Hospitalization)
  Sender: FDA-Public Use
  Company Number: IT-PFIZER INC-2013144683

PATIENT
  Age: 48 Year
  Sex: Male

DRUGS (11)
  1. TORVAST [Suspect]
     Indication: ARTERIOSCLEROSIS
     Dosage: 40 MG, DAILY
     Route: 048
     Dates: start: 20010101, end: 20130313
  2. TORVAST [Suspect]
     Dosage: 80 MG, UNK
  3. COUMADIN [Suspect]
     Indication: MYOCARDIAL ISCHAEMIA
     Dosage: 5 MG, DAILY
     Route: 048
     Dates: start: 20090101, end: 20130313
  4. LIMPIDEX [Concomitant]
     Dosage: UNK
  5. ZYLORIC TEOFARMA [Concomitant]
     Dosage: UNK
  6. LANITOP [Concomitant]
     Dosage: UNK
     Dates: start: 20100101, end: 20130313
  7. NORVASC [Concomitant]
     Dosage: UNK
  8. LASIX [Concomitant]
     Dosage: UNK
  9. LUVION [Concomitant]
     Dosage: UNK
  10. CARVIPRESS [Concomitant]
     Dosage: UNK
  11. CARDIOASPIRIN [Concomitant]
     Dosage: UNK

REACTIONS (8)
  - Renal failure [Fatal]
  - Rhabdomyolysis [Fatal]
  - Thrombocytopenia [Fatal]
  - Epistaxis [Fatal]
  - Hypotension [Unknown]
  - Hyponatraemia [Unknown]
  - White blood cell count decreased [Unknown]
  - Red blood cell count decreased [Unknown]
